FAERS Safety Report 18820314 (Version 1)
Quarter: 2021Q1

REPORT INFORMATION
  Report Type: Spontaneous
  Country: US (occurrence: US)
  Receive Date: 20210202
  Receipt Date: 20210202
  Transmission Date: 20210419
  Serious: No
  Sender: FDA-Public Use
  Company Number: US-ELI_LILLY_AND_COMPANY-US202101009474

PATIENT
  Age: 99 Year
  Sex: Male

DRUGS (4)
  1. ZINC. [Concomitant]
     Active Substance: ZINC
     Indication: COVID-19
     Dosage: UNK, UNKNOWN
     Dates: start: 20210116
  2. BAMLANIVIMAB. [Suspect]
     Active Substance: BAMLANIVIMAB
     Indication: COVID-19
     Dosage: UNK, SINGLE
     Route: 042
     Dates: start: 20210119, end: 20210119
  3. VITAMIN D3 [Concomitant]
     Active Substance: CHOLECALCIFEROL
     Indication: PRODUCT USED FOR UNKNOWN INDICATION
     Dosage: UNK, UNKNOWN
  4. LIPOSOMAL VITAMIN C [Concomitant]
     Indication: COVID-19
     Dosage: UNK, UNKNOWN
     Dates: start: 20210116

REACTIONS (9)
  - Dry mouth [Not Recovered/Not Resolved]
  - Dysstasia [Recovered/Resolved]
  - Balance disorder [Recovered/Resolved]
  - Dizziness [Recovered/Resolved]
  - Confusional state [Recovered/Resolved]
  - Coating in mouth [Not Recovered/Not Resolved]
  - Feeling abnormal [Recovered/Resolved]
  - Lip dry [Not Recovered/Not Resolved]
  - Fatigue [Recovered/Resolved]

NARRATIVE: CASE EVENT DATE: 20210120
